FAERS Safety Report 10304524 (Version 2)
Quarter: 2014Q3

REPORT INFORMATION
  Report Type: Spontaneous
  Country: US (occurrence: US)
  Receive Date: 20140715
  Receipt Date: 20140730
  Transmission Date: 20150326
  Serious: No
  Sender: FDA-Public Use
  Company Number: US-SHIRE-US201403834

PATIENT
  Age: 28 Year
  Sex: Female
  Weight: 69.57 kg

DRUGS (3)
  1. LIALDA [Suspect]
     Active Substance: MESALAMINE
     Indication: COLITIS ULCERATIVE
     Dosage: 4.8 G (FOUR 1.2 G TABLETS), 1X/DAY:QD
     Route: 048
     Dates: start: 201405, end: 201406
  2. LIALDA [Suspect]
     Active Substance: MESALAMINE
     Dosage: 2.4 G (TWO 1.2 G  TABLETS), 1X/DAY:QD
     Route: 048
     Dates: start: 201406, end: 20140707
  3. OMEPRAZOL                          /00661201/ [Concomitant]
     Active Substance: OMEPRAZOLE
     Indication: PRODUCT USED FOR UNKNOWN INDICATION
     Dosage: UNK, UNKNOWN
     Route: 065

REACTIONS (3)
  - Musculoskeletal pain [Unknown]
  - Chest pain [Recovered/Resolved]
  - Back pain [Unknown]

NARRATIVE: CASE EVENT DATE: 201405
